FAERS Safety Report 18101909 (Version 7)
Quarter: 2020Q4

REPORT INFORMATION
  Report Type: Report from Study
  Country: None (occurrence: NL)
  Receive Date: 20200802
  Receipt Date: 20201121
  Transmission Date: 20210113
  Serious: Yes (Hospitalization)
  Sender: FDA-Public Use
  Company Number: NL-ABBVIE-20K-114-3504231-00

PATIENT
  Sex: Male

DRUGS (7)
  1. DUODOPA [Suspect]
     Active Substance: CARBIDOPA\LEVODOPA
     Dosage: MD: 11.8 CD: 3.7 ED: 2.3?REMAINS AT 16 HOURS
     Route: 050
     Dates: start: 2020, end: 2020
  2. DUODOPA [Suspect]
     Active Substance: CARBIDOPA\LEVODOPA
     Dosage: MD 11.8ML, CD 2.6ML/H, ED 2.0ML?REMAINS AT 16 HOURS
     Route: 050
     Dates: start: 20200723, end: 202007
  3. DUODOPA [Suspect]
     Active Substance: CARBIDOPA\LEVODOPA
     Dosage: MD 11.8ML, CD 3.2ML/H, ED 2.0ML REMAINS AT 16 HOURS STARTED ON 03 AUG 2020.
     Route: 050
     Dates: start: 2020, end: 2020
  4. DUODOPA [Suspect]
     Active Substance: CARBIDOPA\LEVODOPA
     Dosage: MD: 11.8 ML; CD: 4 ML; ED: 2.3 ML?REMAINS AT 16 HOURS
     Route: 050
     Dates: start: 2020, end: 2020
  5. DUODOPA [Suspect]
     Active Substance: CARBIDOPA\LEVODOPA
     Indication: PARKINSON^S DISEASE
     Dosage: MD: 10.8ML, CD: 2.6ML/H, ED: 2.0ML?REMAINS AT 16 HOURS
     Route: 050
     Dates: start: 20200720, end: 202007
  6. DUODOPA [Suspect]
     Active Substance: CARBIDOPA\LEVODOPA
     Dosage: MD 11.8 ML CD 4.3 ML/H ED 2.5 ML?REMAINS AT 16 HOURS
     Route: 050
     Dates: start: 2020
  7. DUODOPA [Suspect]
     Active Substance: CARBIDOPA\LEVODOPA
     Dosage: MD 11.8ML, CD 2.9ML/H, ED 2.0ML,?REMAINS AT 16 HOURS
     Route: 050
     Dates: start: 20200731, end: 2020

REACTIONS (22)
  - Abnormal dreams [Not Recovered/Not Resolved]
  - Freezing phenomenon [Unknown]
  - Gait disturbance [Not Recovered/Not Resolved]
  - Therapeutic product effect incomplete [Not Recovered/Not Resolved]
  - Nocturia [Unknown]
  - Posture abnormal [Not Recovered/Not Resolved]
  - Dyskinesia [Recovered/Resolved]
  - Bradykinesia [Not Recovered/Not Resolved]
  - On and off phenomenon [Not Recovered/Not Resolved]
  - Freezing phenomenon [Not Recovered/Not Resolved]
  - Infection [Not Recovered/Not Resolved]
  - Abnormal faeces [Not Recovered/Not Resolved]
  - Medical device site scab [Recovered/Resolved]
  - Paraesthesia [Not Recovered/Not Resolved]
  - Stoma site erythema [Unknown]
  - Speech disorder [Not Recovered/Not Resolved]
  - Suture insertion [Not Recovered/Not Resolved]
  - Blood electrolytes decreased [Not Recovered/Not Resolved]
  - Pain [Not Recovered/Not Resolved]
  - Fall [Not Recovered/Not Resolved]
  - Stoma site erythema [Recovered/Resolved]
  - Drug ineffective [Unknown]

NARRATIVE: CASE EVENT DATE: 2020
